FAERS Safety Report 18367298 (Version 1)
Quarter: 2020Q4

REPORT INFORMATION
  Report Type: Spontaneous
  Country: FR (occurrence: FR)
  Receive Date: 20201009
  Receipt Date: 20201009
  Transmission Date: 20210114
  Serious: Yes (Death, Hospitalization)
  Sender: FDA-Public Use
  Company Number: FR-ASTRAZENECA-2020SF29654

PATIENT
  Age: 72 Year
  Sex: Male

DRUGS (11)
  1. KARDEGIC [Suspect]
     Active Substance: ASPIRIN DL-LYSINE
     Indication: ACUTE CORONARY SYNDROME
     Dosage: 75.0MG UNKNOWN
     Route: 048
     Dates: start: 201506, end: 20150622
  2. LOXEN [Concomitant]
     Dosage: 10 MG/10 ML
     Route: 042
     Dates: start: 201506, end: 201506
  3. ARIXTRA [Suspect]
     Active Substance: FONDAPARINUX SODIUM
     Indication: ACUTE CORONARY SYNDROME
     Dosage: 2.5 MG/0.5 ML
     Route: 058
     Dates: start: 201506, end: 20150622
  4. BRILIQUE [Suspect]
     Active Substance: TICAGRELOR
     Indication: ACUTE CORONARY SYNDROME
     Dosage: 90.0MG UNKNOWN
     Route: 048
     Dates: start: 201506, end: 20150622
  5. PERMIXON [Concomitant]
     Active Substance: HERBALS\SAW PALMETTO
     Route: 048
  6. TOPALGIC [Concomitant]
     Route: 048
  7. INEXIUM [Concomitant]
     Active Substance: ESOMEPRAZOLE
     Route: 048
  8. CRESTOR [Concomitant]
     Active Substance: ROSUVASTATIN CALCIUM
     Dosage: 10.0MG UNKNOWN
     Route: 048
  9. PARACETAMOL [Concomitant]
     Active Substance: ACETAMINOPHEN
     Route: 048
  10. TEMESTA [Concomitant]
     Route: 065
     Dates: end: 20150622
  11. PERINDOPRIL [Concomitant]
     Active Substance: PERINDOPRIL
     Dosage: 2.0MG UNKNOWN
     Route: 065
     Dates: end: 20150622

REACTIONS (2)
  - Condition aggravated [Fatal]
  - Platelet aggregation inhibition [Fatal]

NARRATIVE: CASE EVENT DATE: 20150622
